FAERS Safety Report 18381501 (Version 1)
Quarter: 2020Q4

REPORT INFORMATION
  Report Type: Spontaneous
  Country: US (occurrence: US)
  Receive Date: 20201014
  Receipt Date: 20201014
  Transmission Date: 20210114
  Serious: Yes (Other)
  Sender: FDA-Public Use
  Company Number: US-GW PHARMA-202010USGW03474

PATIENT

DRUGS (4)
  1. KEPPRA [Concomitant]
     Active Substance: LEVETIRACETAM
     Dosage: DOSE INCREASED TO 750 MG IN THE PM
     Route: 065
     Dates: start: 202010
  2. KEPPRA [Concomitant]
     Active Substance: LEVETIRACETAM
     Indication: PRODUCT USED FOR UNKNOWN INDICATION
     Dosage: UNK
     Route: 065
     Dates: end: 2020
  3. EPIDIOLEX [Suspect]
     Active Substance: CANNABIDIOL
     Indication: LENNOX-GASTAUT SYNDROME
     Dosage: 200 MILLIGRAM, BID (FIRST SHIPPED ON 26 NOV 2019)
     Route: 048
     Dates: start: 2019
  4. EPIDIOLEX [Suspect]
     Active Substance: CANNABIDIOL
     Indication: STATUS EPILEPTICUS

REACTIONS (2)
  - Seizure [Unknown]
  - Vomiting [Unknown]

NARRATIVE: CASE EVENT DATE: 2020
